FAERS Safety Report 17788407 (Version 2)
Quarter: 2020Q2

REPORT INFORMATION
  Report Type: Report from Study
  Country: CO (occurrence: CO)
  Receive Date: 20200515
  Receipt Date: 20200527
  Transmission Date: 20200714
  Serious: Yes (Hospitalization, Other)
  Sender: FDA-Public Use
  Company Number: CO-ASTELLAS-2019US035904

PATIENT
  Age: 40 Year
  Sex: Female
  Weight: 45 kg

DRUGS (11)
  1. MYCOPHENOLATE [Concomitant]
     Active Substance: MYCOPHENOLIC ACID
     Dosage: 2 CAPSULES OF 360 MG IN MORNING AND 1 CAPSULE AT NIGHT
     Route: 048
     Dates: start: 20200227, end: 202004
  2. TACROLIMUS. [Suspect]
     Active Substance: TACROLIMUS
     Dosage: 8 MG, ONCE DAILY (1 CAPSULE OF 5 MG AND 3 OF 1 MG)
     Route: 048
     Dates: start: 20200227, end: 202004
  3. MYCOPHENOLATE [Concomitant]
     Active Substance: MYCOPHENOLIC ACID
     Indication: RENAL DISORDER
     Dosage: 720 MG (2 CAPSULES OF 360 MG), EVERY 12 HOURS
     Route: 048
     Dates: start: 20190721, end: 20200226
  4. PREDNISOLONE. [Concomitant]
     Active Substance: PREDNISOLONE
     Indication: RENAL DISORDER
     Route: 048
     Dates: start: 20190721
  5. TACROLIMUS. [Suspect]
     Active Substance: TACROLIMUS
     Indication: RENAL TRANSPLANT
     Dosage: 5 MG (1 CAPSULE OF 5MG), ONCE DAILY
     Route: 048
     Dates: start: 20190721, end: 201908
  6. TACROLIMUS. [Suspect]
     Active Substance: TACROLIMUS
     Dosage: 10 MG (2 CAPSULES OF 5MG), ONCE DAILY
     Route: 048
     Dates: start: 201908, end: 20200226
  7. MYCOPHENOLATE [Concomitant]
     Active Substance: MYCOPHENOLIC ACID
     Dosage: 3 CAPSULES OF 360 MG, ONCE DAILY
     Route: 048
     Dates: start: 202004
  8. PREDNISOLONE. [Concomitant]
     Active Substance: PREDNISOLONE
     Indication: KIDNEY INFECTION
  9. TACROLIMUS. [Suspect]
     Active Substance: TACROLIMUS
     Route: 048
     Dates: start: 202004
  10. VALGANCICLOVIR. [Concomitant]
     Active Substance: VALGANCICLOVIR
     Indication: PRODUCT USED FOR UNKNOWN INDICATION
     Dosage: UNK UNK, UNKNOWN FREQ.
     Route: 048
  11. METOPROLOL. [Concomitant]
     Active Substance: METOPROLOL
     Indication: PRODUCT USED FOR UNKNOWN INDICATION
     Dosage: (1/2 CAPSULE OF 50MG IN THE MORNING AND ? CAPSULE OF 50MG AT NIGHT), TWICE DAILY
     Route: 048

REACTIONS (10)
  - Complications of transplanted kidney [Recovering/Resolving]
  - Nephritis [Unknown]
  - Vision blurred [Not Recovered/Not Resolved]
  - Immunosuppressant drug level increased [Unknown]
  - Blood creatinine increased [Recovered/Resolved]
  - Gastritis [Recovering/Resolving]
  - Perinephric collection [Unknown]
  - Kidney transplant rejection [Unknown]
  - Human polyomavirus infection [Recovered/Resolved]
  - Cytomegalovirus infection [Recovering/Resolving]

NARRATIVE: CASE EVENT DATE: 201907
